FAERS Safety Report 7532783-6 (Version None)
Quarter: 2011Q2

REPORT INFORMATION
  Report Type: 
  Country: None (occurrence: None)
  Receive Date: 20110608
  Receipt Date: 20110531
  Transmission Date: 20111010
  Serious: Yes (Other)
  Sender: FDA-Public Use
  Company Number: B0721589A

PATIENT
  Sex: Female

DRUGS (5)
  1. LEVETIRACETAM [Concomitant]
  2. TEGRETOL [Concomitant]
  3. ZONISAMIDE [Concomitant]
  4. FLUTICASONE PROPIONATE [Suspect]
     Dosage: 2SPR PER DAY
     Route: 045
     Dates: start: 20110517, end: 20110520
  5. LORAZEPAM [Concomitant]

REACTIONS (7)
  - EYE DISORDER [None]
  - PRESYNCOPE [None]
  - BLINDNESS [None]
  - EYE PAIN [None]
  - PHOTOPSIA [None]
  - LOSS OF CONSCIOUSNESS [None]
  - DIZZINESS [None]
